FAERS Safety Report 18215239 (Version 1)
Quarter: 2020Q3

REPORT INFORMATION
  Report Type: Spontaneous
  Country: US (occurrence: US)
  Receive Date: 20200831
  Receipt Date: 20200831
  Transmission Date: 20201103
  Serious: No
  Sender: FDA-Public Use
  Company Number: US-ALKERMES INC.-ALK-2020-003543

PATIENT
  Sex: Female

DRUGS (2)
  1. PROPANOLOL [PROPRANOLOL] [Concomitant]
     Active Substance: PROPRANOLOL HYDROCHLORIDE
     Indication: PRODUCT USED FOR UNKNOWN INDICATION
     Dosage: UNK
     Route: 065
  2. VIVITROL [Suspect]
     Active Substance: NALTREXONE
     Indication: PRODUCT USED FOR UNKNOWN INDICATION
     Dosage: 380 MILLIGRAM, QMO
     Route: 030
     Dates: start: 202008

REACTIONS (3)
  - Speech disorder [Not Recovered/Not Resolved]
  - Tremor [Not Recovered/Not Resolved]
  - Dysarthria [Not Recovered/Not Resolved]

NARRATIVE: CASE EVENT DATE: 202008
